FAERS Safety Report 8043416-7 (Version None)
Quarter: 2012Q1

REPORT INFORMATION
  Report Type: 
  Country: None (occurrence: None)
  Receive Date: 20120112
  Receipt Date: 20120106
  Transmission Date: 20120608
  Serious: Yes (Other)
  Sender: FDA-Public Use
  Company Number: PHHY2012GB001287

PATIENT
  Age: 78 Year
  Sex: Male

DRUGS (5)
  1. RANITIDINE [Concomitant]
     Indication: DYSPEPSIA
     Dosage: 150 MG, BID
     Route: 048
     Dates: start: 20110519
  2. WARFARIN SODIUM [Concomitant]
     Indication: HYPERCHOLESTEROLAEMIA
     Dosage: 3 MG, QD
     Route: 048
     Dates: start: 20110519
  3. AMIODARONE HCL [Suspect]
     Indication: ARRHYTHMIA
     Dosage: 200 MG, QD
     Route: 048
     Dates: start: 20110519
  4. BISOPROLOL FUMARATE [Concomitant]
     Indication: ARRHYTHMIA
     Dosage: 1.25 MG, QD
     Route: 048
     Dates: start: 20110519
  5. SIMVASTATIN [Concomitant]
     Indication: HYPERCHOLESTEROLAEMIA
     Dosage: 40 MG, QD
     Route: 048
     Dates: start: 20110519

REACTIONS (1)
  - RED BLOOD CELL SEDIMENTATION RATE DECREASED [None]
